FAERS Safety Report 6578085-6 (Version None)
Quarter: 2010Q1

REPORT INFORMATION
  Report Type: 
  Country: None (occurrence: None)
  Receive Date: 20100211
  Receipt Date: 20100203
  Transmission Date: 20100710
  Serious: Yes (Hospitalization)
  Sender: FDA-Public Use
  Company Number: FR-BRISTOL-MYERS SQUIBB COMPANY-14969273

PATIENT
  Sex: Female

DRUGS (2)
  1. ERBITUX [Suspect]
     Indication: HEAD AND NECK CANCER
     Dosage: ATLEAST FIFTH COURSE
     Route: 042
  2. RADIOTHERAPY [Concomitant]
     Indication: HEAD AND NECK CANCER

REACTIONS (1)
  - THROMBOCYTOPENIA [None]
